FAERS Safety Report 15811802 (Version 3)
Quarter: 2019Q1

REPORT INFORMATION
  Report Type: Report from Study
  Country: BR (occurrence: BR)
  Receive Date: 20190111
  Receipt Date: 20190210
  Transmission Date: 20190417
  Serious: Yes (Hospitalization)
  Sender: FDA-Public Use
  Company Number: PHHY2019BR001483

PATIENT
  Age: 16 Year
  Sex: Male
  Weight: 36 kg

DRUGS (3)
  1. PURAN [Concomitant]
     Active Substance: LEVOTHYROXINE SODIUM
     Indication: HYPOTHYROIDISM
     Dosage: 50 MG, QD (1 TABLET DAILY )  (2 YEARS AGO)
     Route: 048
  2. HYDROXYUREA. [Concomitant]
     Active Substance: HYDROXYUREA
     Indication: LIGAMENT INJURY
     Dosage: 500 MG, 2 CAPSULES ON ONE DAY AND 3 CAPSULES ON THE OTHER, STARTED 8 YEARS AGO
     Route: 065
  3. OMNITROPE [Suspect]
     Active Substance: SOMATROPIN
     Indication: BLOOD GROWTH HORMONE
     Dosage: 2 UG, QN
     Route: 058
     Dates: start: 20170601

REACTIONS (6)
  - Sepsis [Recovered/Resolved]
  - Malaise [Recovered/Resolved]
  - Pneumonia [Recovering/Resolving]
  - Lung infection [Recovering/Resolving]
  - Sickle cell disease [Not Recovered/Not Resolved]
  - Pleural effusion [Recovered/Resolved]

NARRATIVE: CASE EVENT DATE: 20181121
